FAERS Safety Report 6155573-8 (Version None)
Quarter: 2009Q2

REPORT INFORMATION
  Report Type: 
  Country: None (occurrence: None)
  Receive Date: 20090415
  Receipt Date: 20090407
  Transmission Date: 20091009
  Serious: Yes (Other)
  Sender: FDA-Public Use
  Company Number: US-JNJCH-2009009651

PATIENT
  Age: 42 Year
  Sex: Female
  Weight: 52.2 kg

DRUGS (1)
  1. VISINE-A [Suspect]
     Indication: DRY EYE
     Dosage: TEXT:ONE DROP 3-4X DAILY
     Route: 047
     Dates: start: 20090301, end: 20090331

REACTIONS (3)
  - APPLICATION SITE ERYTHEMA [None]
  - APPLICATION SITE IRRITATION [None]
  - EYE SWELLING [None]
